FAERS Safety Report 21329571 (Version 1)
Quarter: 2022Q3

REPORT INFORMATION
  Report Type: Other
  Country: US (occurrence: US)
  Receive Date: 20220913
  Receipt Date: 20220913
  Transmission Date: 20221027
  Serious: Yes (Hospitalization)
  Sender: FDA-Public Use
  Company Number: US-LEADIANT GMBH-2022STPI000071

PATIENT
  Sex: Male

DRUGS (1)
  1. MATULANE [Suspect]
     Active Substance: PROCARBAZINE HYDROCHLORIDE
     Indication: Brain neoplasm malignant
     Dosage: 50 MILLIGRAM, TAKE3 CAPSULES (150 MG TOTAL) ON DAYS 8 TO 10 AND 2 CAPSULES (100 MG TOTAL)  ON DAYS 1
     Route: 048
     Dates: start: 20220125

REACTIONS (1)
  - Pulmonary oedema [Unknown]
